FAERS Safety Report 9127225 (Version 1)
Quarter: 2013Q1

REPORT INFORMATION
  Report Type: Spontaneous
  Country: US (occurrence: US)
  Receive Date: 20130228
  Receipt Date: 20130228
  Transmission Date: 20140127
  Serious: No
  Sender: FDA-Public Use
  Company Number: US-GLAXOSMITHKLINE-A0962704A

PATIENT
  Age: 44 Year
  Sex: Female

DRUGS (6)
  1. LAMOTRIGINE [Suspect]
     Indication: CONVULSION
     Dosage: 500MG PER DAY
     Route: 048
     Dates: start: 2010, end: 2010
  2. TOPAMAX [Concomitant]
  3. ABILIFY [Concomitant]
  4. EFFEXOR [Concomitant]
  5. ALPRAZOLAM [Concomitant]
  6. PROVIGIL [Concomitant]

REACTIONS (2)
  - Bipolar disorder [Recovered/Resolved]
  - Drug ineffective [Unknown]
